FAERS Safety Report 4580306-6 (Version None)
Quarter: 2005Q1

REPORT INFORMATION
  Report Type: 
  Country: None (occurrence: None)
  Receive Date: 20050127
  Receipt Date: 20040901
  Transmission Date: 20050727
  Serious: No
  Sender: FDA-Public Use
  Company Number: USA040670487

PATIENT
  Age: 42 Year
  Sex: Female
  Weight: 57 kg

DRUGS (8)
  1. STRATTERA [Suspect]
     Indication: ATTENTION DEFICIT/HYPERACTIVITY DISORDER
     Dosage: 60 MG/1 DAY
     Dates: start: 20040503, end: 20040727
  2. XANAX [Concomitant]
  3. SOMA [Concomitant]
  4. MAXALT-MLT (RIZATRIPTAN BENZOATE) [Concomitant]
  5. DICYCLOMINE [Concomitant]
  6. PROMETRIUM [Concomitant]
  7. EXCEDRIN (MIGRAINE) [Concomitant]
  8. VITAMINS [Concomitant]

REACTIONS (5)
  - CONSTIPATION [None]
  - DRUG WITHDRAWAL SYNDROME [None]
  - MIGRAINE [None]
  - PRURITUS [None]
  - TIC [None]
